FAERS Safety Report 24838277 (Version 6)
Quarter: 2025Q1

REPORT INFORMATION
  Report Type: Spontaneous
  Country: US (occurrence: US)
  Receive Date: 20250113
  Receipt Date: 20250307
  Transmission Date: 20250408
  Serious: Yes (Other)
  Sender: PFIZER
  Company Number: US-PFIZER INC-PV202400075467

PATIENT
  Age: 72 Year
  Sex: Female
  Weight: 83.447 kg

DRUGS (9)
  1. IBRANCE [Suspect]
     Active Substance: PALBOCICLIB
     Indication: Invasive lobular breast carcinoma
     Route: 048
  2. IBRANCE [Suspect]
     Active Substance: PALBOCICLIB
     Route: 048
  3. IBRANCE [Suspect]
     Active Substance: PALBOCICLIB
  4. EXEMESTANE [Concomitant]
     Active Substance: EXEMESTANE
     Dosage: 25 MG, DAILY (1 TABLET ORALLY EVERY DAY. TAKE ONCE DAILY AFTER A MEAL)
     Route: 048
     Dates: start: 20240117
  5. BIOTIN [Concomitant]
     Active Substance: BIOTIN
     Dosage: UNK, DAILY
     Route: 048
  6. BENICAR [Concomitant]
     Active Substance: OLMESARTAN MEDOXOMIL
     Dosage: 5 MG, ALTERNATE DAY
  7. TYLENOL [Concomitant]
     Active Substance: ACETAMINOPHEN
     Route: 048
  8. IBUPROFEN [Concomitant]
     Active Substance: IBUPROFEN
  9. PROCHLORPERAZINE [Concomitant]
     Active Substance: PROCHLORPERAZINE
     Indication: Nausea
     Route: 048

REACTIONS (8)
  - Neutropenia [Unknown]
  - Fatigue [Recovering/Resolving]
  - Constipation [Unknown]
  - White blood cell count decreased [Unknown]
  - Headache [Unknown]
  - Diarrhoea [Unknown]
  - Nausea [Unknown]
  - Off label use [Unknown]
